FAERS Safety Report 10488243 (Version 1)
Quarter: 2014Q4

REPORT INFORMATION
  Report Type: Spontaneous
  Country: CA (occurrence: CA)
  Receive Date: 20141002
  Receipt Date: 20141002
  Transmission Date: 20150528
  Serious: Yes (Other)
  Sender: FDA-Public Use
  Company Number: CA-009507513-1409CAN010062

PATIENT
  Sex: Male
  Weight: 86 kg

DRUGS (1)
  1. IVERMECTIN. [Suspect]
     Active Substance: IVERMECTIN
     Indication: STRONGYLOIDIASIS
     Dosage: 86KGX200MCG/KG=17.2MG, ROUNDED UP TO 18MGX2DAYS, TOTAL 12 TABLETS
     Route: 048
     Dates: start: 20140317, end: 20140318

REACTIONS (3)
  - Quality of life decreased [Unknown]
  - Strongyloidiasis [Unknown]
  - Poor quality sleep [Unknown]

NARRATIVE: CASE EVENT DATE: 2014
